FAERS Safety Report 7910828-9 (Version None)
Quarter: 2011Q4

REPORT INFORMATION
  Report Type: 
  Country: None (occurrence: None)
  Receive Date: 20111114
  Receipt Date: 20111107
  Transmission Date: 20120403
  Serious: Yes (Other)
  Sender: FDA-Public Use
  Company Number: US-BIOGENIDEC-2011BI017388

PATIENT
  Age: 48 Year
  Sex: Female

DRUGS (33)
  1. ATENOLOL [Concomitant]
     Route: 048
  2. SEROQUEL [Concomitant]
     Route: 048
  3. BACLOFEN [Concomitant]
     Route: 048
  4. ASPIRIN [Concomitant]
  5. FISH OIL [Concomitant]
     Route: 048
  6. VITAMIN B-12 [Concomitant]
     Route: 048
  7. TRAMADOL HCL [Concomitant]
     Route: 048
  8. MECLIZINE [Concomitant]
     Route: 048
  9. VITAMIN E [Concomitant]
     Route: 048
  10. IMITREX [Concomitant]
     Indication: MIGRAINE
     Route: 048
  11. PROMETHAZINE [Concomitant]
  12. DIOVAN [Concomitant]
     Route: 048
  13. NEURONTIN [Concomitant]
     Route: 048
  14. TRICOR [Concomitant]
     Route: 048
  15. CALCIUM [Concomitant]
     Route: 048
  16. VITAMIN B6 [Concomitant]
     Route: 048
  17. EPIDRIN [Concomitant]
     Route: 048
  18. PEDIALYTE [Concomitant]
  19. MUCINEX DM [Concomitant]
     Indication: COUGH
  20. TYSABRI [Suspect]
     Indication: MULTIPLE SCLEROSIS
     Route: 042
     Dates: start: 20070718
  21. CELEXA [Concomitant]
     Route: 048
  22. CENTRUM [Concomitant]
     Route: 048
  23. IMODIUM [Concomitant]
  24. WELLBUTRIN XL [Concomitant]
     Route: 048
  25. FISH OIL [Concomitant]
     Route: 048
  26. VITAMIN D [Concomitant]
     Route: 048
  27. HYOSCYAMINE SULFATE [Concomitant]
  28. NEURONTIN [Concomitant]
     Route: 048
  29. TRIAMTERENE [Concomitant]
     Route: 048
  30. HYDROCHLOROTHIAZIDE [Concomitant]
     Route: 048
  31. NEURONTIN [Concomitant]
     Indication: NEURALGIA
     Route: 048
  32. OMEPRAZOLE [Concomitant]
     Route: 048
  33. ASPIRIN [Concomitant]
     Route: 048

REACTIONS (2)
  - ELECTROENCEPHALOGRAM ABNORMAL [None]
  - CONVULSION [None]
